FAERS Safety Report 17072604 (Version 1)
Quarter: 2019Q4

REPORT INFORMATION
  Report Type: Spontaneous
  Country: US (occurrence: US)
  Receive Date: 20191125
  Receipt Date: 20191125
  Transmission Date: 20200122
  Serious: No
  Sender: FDA-Public Use
  Company Number: US-MYLANLABS-2019M1109146

PATIENT
  Age: 66 Year
  Sex: Male
  Weight: 111 kg

DRUGS (4)
  1. FENTANYL TRANSDERMAL SYSTEM [Suspect]
     Active Substance: FENTANYL
     Indication: PLASMA CELL MYELOMA
     Dosage: 50 MICROGRAM, Q2D
     Route: 062
     Dates: start: 20180301
  2. FENTANYL TRANSDERMAL SYSTEM [Suspect]
     Active Substance: FENTANYL
     Indication: SPINAL COMPRESSION FRACTURE
  3. FENTANYL TRANSDERMAL SYSTEM [Suspect]
     Active Substance: FENTANYL
     Indication: PLASMA CELL MYELOMA
     Dosage: 12 MICROGRAM, Q2D
     Route: 062
     Dates: start: 20180301
  4. FENTANYL TRANSDERMAL SYSTEM [Suspect]
     Active Substance: FENTANYL
     Indication: SPINAL COMPRESSION FRACTURE

REACTIONS (2)
  - Wrong technique in product usage process [Not Recovered/Not Resolved]
  - Off label use [Not Recovered/Not Resolved]

NARRATIVE: CASE EVENT DATE: 20180301
